FAERS Safety Report 17784756 (Version 1)
Quarter: 2020Q2

REPORT INFORMATION
  Report Type: Report from Study
  Country: US (occurrence: US)
  Receive Date: 20200513
  Receipt Date: 20200513
  Transmission Date: 20200714
  Serious: No
  Sender: FDA-Public Use
  Company Number: NVSC2020US130379

PATIENT
  Sex: Female

DRUGS (1)
  1. ENTRESTO [Suspect]
     Active Substance: SACUBITRIL\VALSARTAN
     Indication: CARDIAC FAILURE
     Dosage: 50 MG, ONCE2SDO
     Route: 048
     Dates: start: 201809

REACTIONS (3)
  - Ejection fraction abnormal [Unknown]
  - Thyroid disorder [Unknown]
  - Blood pressure fluctuation [Unknown]
